FAERS Safety Report 5578813-2 (Version None)
Quarter: 2008Q1

REPORT INFORMATION
  Report Type: 
  Country: None (occurrence: None)
  Receive Date: 20080102
  Receipt Date: 20071221
  Transmission Date: 20080703
  Serious: Yes (Other)
  Sender: FDA-Public Use
  Company Number: US-JNJFOC-20071206073

PATIENT
  Sex: Female
  Weight: 56.7 kg

DRUGS (8)
  1. DURAGESIC-100 [Suspect]
     Indication: PAIN
     Route: 062
  2. PREDNISONE [Concomitant]
     Indication: UNEVALUABLE EVENT
     Route: 048
  3. PREMARIN [Concomitant]
     Indication: HORMONE REPLACEMENT THERAPY
     Route: 048
  4. CARDIZEM [Concomitant]
     Indication: MITRAL VALVE PROLAPSE
     Route: 048
  5. CELEBREX [Concomitant]
     Indication: FIBROMYALGIA
     Route: 048
  6. VICODIN [Concomitant]
     Indication: PAIN
     Dosage: 5/500MG AS NEEDED
     Route: 048
  7. ULTRAM [Concomitant]
     Indication: PAIN
     Route: 048
  8. PROCARDIA [Concomitant]
     Indication: MITRAL VALVE PROLAPSE
     Route: 048

REACTIONS (2)
  - APPLICATION SITE REACTION [None]
  - UNEVALUABLE EVENT [None]
